FAERS Safety Report 8307803-1 (Version None)
Quarter: 2012Q2

REPORT INFORMATION
  Report Type: 
  Country: None (occurrence: None)
  Receive Date: 20120424
  Receipt Date: 20120412
  Transmission Date: 20120825
  Serious: Yes (Hospitalization)
  Sender: FDA-Public Use
  Company Number: GB-PFIZER INC-2012092359

PATIENT
  Age: 74 Year
  Sex: Male

DRUGS (5)
  1. NITROFURANTOIN [Concomitant]
     Dosage: 100 MG, UNK
     Dates: start: 20120401, end: 20120408
  2. AMIODARONE [Concomitant]
     Dosage: 100 MG, UNK
     Route: 048
  3. TAMSULOSIN [Concomitant]
     Dosage: 400 MG, UNK
  4. SUTENT [Suspect]
     Indication: TRANSITIONAL CELL CARCINOMA
     Dosage: 25 MG, UNK
     Dates: start: 20120404
  5. CIPROFLOXACIN [Concomitant]
     Dosage: 500 MG, UNK
     Route: 048
     Dates: start: 20120330, end: 20120406

REACTIONS (1)
  - HYPOTENSION [None]
